FAERS Safety Report 5749674-3 (Version None)
Quarter: 2008Q2

REPORT INFORMATION
  Report Type: 
  Country: None (occurrence: None)
  Receive Date: 20080527
  Receipt Date: 20080515
  Transmission Date: 20081010
  Serious: Yes (Hospitalization)
  Sender: FDA-Public Use
  Company Number: US-JNJFOC-20061105881

PATIENT
  Sex: Female
  Weight: 87.8 kg

DRUGS (4)
  1. ORTHO EVRA [Suspect]
     Indication: CONTRACEPTION
     Route: 062
  2. AMOXICILLIN [Concomitant]
     Indication: SINUSITIS
  3. DIET PILLS [Concomitant]
     Indication: WEIGHT DECREASED
  4. TYLENOL COLD AND COUGH [Concomitant]
     Indication: DRUG USE FOR UNKNOWN INDICATION

REACTIONS (1)
  - THROMBOTIC THROMBOCYTOPENIC PURPURA [None]
